FAERS Safety Report 5318785-9 (Version None)
Quarter: 2007Q2

REPORT INFORMATION
  Report Type: 
  Country: None (occurrence: None)
  Receive Date: 20070504
  Receipt Date: 20070504
  Transmission Date: 20071010
  Serious: Yes (Other)
  Sender: FDA-Public Use
  Company Number: None

PATIENT
  Age: 69 Year
  Sex: Female

DRUGS (1)
  1. SPIRIVA [Suspect]
     Dosage: ONCE DAILY
     Dates: start: 20060401, end: 20070201

REACTIONS (1)
  - SKIN DISCOLOURATION [None]
